FAERS Safety Report 6868632-9 (Version None)
Quarter: 2010Q3

REPORT INFORMATION
  Report Type: 
  Country: None (occurrence: None)
  Receive Date: 20100722
  Receipt Date: 20080717
  Transmission Date: 20110219
  Serious: No
  Sender: FDA-Public Use
  Company Number: US-PFIZER INC-2008046938

PATIENT
  Age: 48 Year
  Sex: Female

DRUGS (2)
  1. CHANTIX [Suspect]
     Indication: SMOKING CESSATION THERAPY
     Dates: start: 20080101
  2. VITAMINS [Concomitant]

REACTIONS (10)
  - ABNORMAL DREAMS [None]
  - CARDIAC DISORDER [None]
  - DRY MOUTH [None]
  - DYSPNOEA [None]
  - FEELING ABNORMAL [None]
  - IRRITABILITY [None]
  - MOOD SWINGS [None]
  - NEUROPATHY PERIPHERAL [None]
  - TREMOR [None]
  - VISUAL IMPAIRMENT [None]
